FAERS Safety Report 19190503 (Version 1)
Quarter: 2021Q2

REPORT INFORMATION
  Report Type: Spontaneous
  Country: US (occurrence: US)
  Receive Date: 20210428
  Receipt Date: 20210428
  Transmission Date: 20210717
  Serious: Yes (Hospitalization)
  Sender: FDA-Public Use
  Company Number: US-LUPIN PHARMACEUTICALS INC.-2021-05489

PATIENT
  Age: 26 Year
  Sex: Male

DRUGS (12)
  1. EPIDIOLEX [Suspect]
     Active Substance: CANNABIDIOL
     Indication: STATUS EPILEPTICUS
     Dosage: 120 MILLIGRAM, BID
     Route: 065
  2. PRIMIDONE. [Suspect]
     Active Substance: PRIMIDONE
     Indication: STATUS EPILEPTICUS
     Dosage: 250 MILLIGRAM, TID
     Route: 065
  3. MIDAZOLAM. [Suspect]
     Active Substance: MIDAZOLAM
     Dosage: UNK, RECEIVED A LOADING DOSE OF MIDAZOLAM, FOLLOWED BY A CONTINUOUS INFUSION REACHING OVER 2.5 MG/KG
     Route: 065
  4. LACOSAMIDE. [Suspect]
     Active Substance: LACOSAMIDE
     Indication: STATUS EPILEPTICUS
     Dosage: 200 MILLIGRAM, BID
     Route: 065
  5. PENTOBARBITAL. [Suspect]
     Active Substance: PENTOBARBITAL
     Indication: STATUS EPILEPTICUS
     Dosage: UNK, AN INFUSION OF PENTOBARBITAL WAS LOADED
     Route: 065
  6. PHENYTOIN SODIUM. [Suspect]
     Active Substance: PHENYTOIN SODIUM
     Indication: STATUS EPILEPTICUS
     Dosage: 200 MILLIGRAM, QD
     Route: 065
  7. CLONAZEPAM. [Suspect]
     Active Substance: CLONAZEPAM
     Indication: STATUS EPILEPTICUS
     Dosage: UNK, INITIAL DOSE UNKNOWN
     Route: 048
  8. PENTOBARBITAL. [Suspect]
     Active Substance: PENTOBARBITAL
     Dosage: 3 MILLIGRAM/KILOGRAM, AN INFUSION OF PENTOBARBITAL WAS LOADED AND MAINTAINED AT 3 MG/KG/HR
     Route: 065
  9. KETAMINE [Suspect]
     Active Substance: KETAMINE
     Indication: STATUS EPILEPTICUS
     Dosage: UNK
     Route: 065
  10. CLONAZEPAM. [Suspect]
     Active Substance: CLONAZEPAM
     Dosage: 2 MILLIGRAM, TID
     Route: 048
  11. MIDAZOLAM. [Suspect]
     Active Substance: MIDAZOLAM
     Indication: STATUS EPILEPTICUS
     Dosage: UNK, RECEIVED A LOADING DOSE OF MIDAZOLAM, INFUSION
     Route: 065
  12. DIAZEPAM. [Suspect]
     Active Substance: DIAZEPAM
     Indication: STATUS EPILEPTICUS
     Dosage: UNK
     Route: 054

REACTIONS (1)
  - Drug ineffective [Unknown]
